FAERS Safety Report 10243230 (Version 2)
Quarter: 2014Q2

REPORT INFORMATION
  Report Type: Spontaneous
  Country: US (occurrence: None)
  Receive Date: 20140616
  Receipt Date: 20140627
  Transmission Date: 20141212
  Serious: Yes (Hospitalization, Other)
  Sender: FDA-Public Use
  Company Number: AUR-APL-2014-06242

PATIENT
  Age: 67 Year
  Sex: Female

DRUGS (11)
  1. LEVOFLOXACIN [Suspect]
     Indication: ENDOPHTHALMITIS
     Route: 048
  2. LEVOFLOXACIN [Suspect]
     Indication: STREPTOCOCCAL INFECTION
     Route: 048
  3. LEVOFLOXACIN [Suspect]
     Indication: ENDOPHTHALMITIS
     Route: 042
  4. LEVOFLOXACIN [Suspect]
     Indication: STREPTOCOCCAL INFECTION
     Route: 042
  5. VANCOMYCIN (VANCOMYCIN) [Concomitant]
  6. CEFTAZIDIME (CEFTAZIDIME) [Concomitant]
  7. PREDNISONE (PREDNISONE) [Concomitant]
  8. MOXIFLOXACIN (MOXIFLOXACIN) [Concomitant]
  9. AMLODIPINE (AMLODIPINE) [Concomitant]
  10. METOPROLOL (METOPROLOL) [Concomitant]
  11. LEVOTHYROXINE (LEVOTHYROXINE) [Concomitant]

REACTIONS (8)
  - Vanishing bile duct syndrome [None]
  - Drug-induced liver injury [None]
  - Hepatic fibrosis [None]
  - Cholestasis [None]
  - Jaundice [None]
  - Ocular icterus [None]
  - Liver function test abnormal [None]
  - Chromaturia [None]
